FAERS Safety Report 16111479 (Version 1)
Quarter: 2019Q1

REPORT INFORMATION
  Report Type: Spontaneous
  Country: DE (occurrence: DE)
  Receive Date: 20190325
  Receipt Date: 20190325
  Transmission Date: 20190418
  Serious: Yes (Disabling)
  Sender: FDA-Public Use
  Company Number: DE-BAYER-2019-040519

PATIENT
  Age: 59 Year
  Sex: Female
  Weight: 53 kg

DRUGS (1)
  1. CIPROBAY [Suspect]
     Active Substance: CIPROFLOXACIN
     Indication: URINARY TRACT INFECTION
     Dosage: 125 MG, BID
     Dates: start: 201401

REACTIONS (4)
  - Chondropathy [None]
  - Tendon rupture [None]
  - Ligament injury [None]
  - Meniscus injury [None]

NARRATIVE: CASE EVENT DATE: 201412
